FAERS Safety Report 6094844-0 (Version None)
Quarter: 2009Q1

REPORT INFORMATION
  Report Type: 
  Country: None (occurrence: None)
  Receive Date: 20090227
  Receipt Date: 20090224
  Transmission Date: 20090719
  Serious: Yes (Hospitalization)
  Sender: FDA-Public Use
  Company Number: GB-JNJFOC-20090205096

PATIENT
  Sex: Female

DRUGS (3)
  1. PARACETAMOL [Suspect]
  2. PARACETAMOL [Suspect]
     Indication: DRUG USE FOR UNKNOWN INDICATION
  3. N-ACETYLCYSTEINE [Suspect]
     Indication: OVERDOSE

REACTIONS (4)
  - DIARRHOEA [None]
  - FLUSHING [None]
  - OVERDOSE [None]
  - RENAL CORTICAL NECROSIS [None]
